FAERS Safety Report 15537578 (Version 2)
Quarter: 2018Q4

REPORT INFORMATION
  Report Type: Spontaneous
  Country: ZA (occurrence: ZA)
  Receive Date: 20181022
  Receipt Date: 20181105
  Transmission Date: 20190205
  Serious: Yes (Death)
  Sender: FDA-Public Use
  Company Number: ZA-PFIZER INC-2018426734

PATIENT
  Age: 90 Year
  Sex: Male

DRUGS (12)
  1. LYRICA [Suspect]
     Active Substance: PREGABALIN
     Dosage: 75 MG, UNK
  2. ADCO-SIMVASTATIN [Suspect]
     Active Substance: SIMVASTATIN
     Dosage: 20 MG, UNK
  3. SERENACE [Suspect]
     Active Substance: HALOPERIDOL
     Dosage: 0.5 MG, UNK
  4. MYLACAND [Suspect]
     Active Substance: CANDESARTAN CILEXETIL
     Dosage: 10 MG, UNK
  5. DISPRIN CARDIOCARE [Suspect]
     Active Substance: ASPIRIN
     Dosage: 100 MG, UNK
  6. CARLOC [Suspect]
     Active Substance: CARVEDILOL
     Dosage: 12.5 MG, UNK
  7. DETRUNORM [Suspect]
     Active Substance: PROPIVERINE HYDROCHLORIDE
     Dosage: 15 MG, UNK
  8. EUTHYROX [Suspect]
     Active Substance: LEVOTHYROXINE SODIUM
     Dosage: 50 UG, UNK
  9. SANDOZ OMEPRAZOLE [Suspect]
     Active Substance: OMEPRAZOLE
     Dosage: 20 MG, UNK
  10. MEMOR [Suspect]
     Active Substance: MEMANTINE HYDROCHLORIDE
     Dosage: 10 MG, UNK
  11. UNAT [TORASEMIDE] [Suspect]
     Active Substance: TORSEMIDE
     Dosage: 10 MG, UNK
  12. RIDAQ [Suspect]
     Active Substance: HYDROCHLOROTHIAZIDE
     Dosage: 25 MG, UNK

REACTIONS (1)
  - Death [Fatal]

NARRATIVE: CASE EVENT DATE: 20180905
